FAERS Safety Report 17562191 (Version 1)
Quarter: 2020Q1

REPORT INFORMATION
  Report Type: Spontaneous
  Country: UA (occurrence: UA)
  Receive Date: 20200319
  Receipt Date: 20200319
  Transmission Date: 20200409
  Serious: Yes (Other)
  Sender: FDA-Public Use
  Company Number: UA-ASTRAZENECA-2020SE36641

PATIENT
  Age: 52 Year
  Sex: Female

DRUGS (1)
  1. FASLODEX [Suspect]
     Active Substance: FULVESTRANT
     Route: 030
     Dates: start: 20200306, end: 20200306

REACTIONS (2)
  - Hypersensitivity [Unknown]
  - Bronchospasm [Unknown]

NARRATIVE: CASE EVENT DATE: 20200306
